FAERS Safety Report 6341488-9 (Version None)
Quarter: 2009Q3

REPORT INFORMATION
  Report Type: 
  Country: None (occurrence: None)
  Receive Date: 20090904
  Receipt Date: 20090828
  Transmission Date: 20100115
  Serious: Yes (Other)
  Sender: FDA-Public Use
  Company Number: JP-BAYER-200913117BYL

PATIENT
  Age: 54 Year
  Sex: Male
  Weight: 58 kg

DRUGS (16)
  1. FLUDARA [Suspect]
     Indication: MYELODYSPLASTIC SYNDROME
     Route: 042
     Dates: start: 20080730, end: 20080803
  2. ENDOXAN [Suspect]
     Indication: MYELODYSPLASTIC SYNDROME
     Route: 042
     Dates: start: 20080804, end: 20080804
  3. LEVOFLOXACIN [Concomitant]
     Indication: INFECTION PROPHYLAXIS
     Route: 048
     Dates: start: 20080730, end: 20080807
  4. DIFLUCAN [Concomitant]
     Indication: INFECTION PROPHYLAXIS
     Route: 048
     Dates: start: 20080730, end: 20080807
  5. ZOVIRAX [Concomitant]
     Indication: INFECTION PROPHYLAXIS
     Route: 042
     Dates: start: 20080806, end: 20080913
  6. ZOVIRAX [Concomitant]
     Route: 048
     Dates: start: 20080914, end: 20080915
  7. ZOVIRAX [Concomitant]
     Route: 048
     Dates: start: 20080730, end: 20080805
  8. URSO 250 [Concomitant]
     Indication: PROPHYLAXIS AGAINST GRAFT VERSUS HOST DISEASE
     Route: 048
     Dates: start: 20080730
  9. SELBEX [Concomitant]
     Route: 048
     Dates: start: 20080730
  10. SANDIMMUNE [Concomitant]
     Indication: PROPHYLAXIS AGAINST GRAFT VERSUS HOST DISEASE
     Route: 042
     Dates: start: 20080805, end: 20080825
  11. NEORAL [Concomitant]
     Indication: PROPHYLAXIS AGAINST GRAFT VERSUS HOST DISEASE
     Route: 048
     Dates: start: 20080825
  12. UROMITEXAN [Concomitant]
     Indication: INFECTION PROPHYLAXIS
     Route: 042
     Dates: start: 20080804, end: 20080804
  13. NEU-UP [Concomitant]
     Route: 042
     Dates: start: 20080811, end: 20080825
  14. FUNGUARD [Concomitant]
     Indication: INFECTION PROPHYLAXIS
     Route: 042
     Dates: start: 20080811, end: 20080825
  15. CONCENTRATED RED CELLS [Concomitant]
     Indication: PACKED RED BLOOD CELL TRANSFUSION
     Route: 042
     Dates: start: 20080802, end: 20080803
  16. PLATELETS [Concomitant]
     Indication: PLATELET TRANSFUSION
     Route: 042
     Dates: start: 20080808, end: 20080823

REACTIONS (2)
  - DECREASED APPETITE [None]
  - HEPATIC FUNCTION ABNORMAL [None]
